FAERS Safety Report 24884276 (Version 1)
Quarter: 2025Q1

REPORT INFORMATION
  Report Type: Report from Study
  Country: PK (occurrence: PK)
  Receive Date: 20250124
  Receipt Date: 20250124
  Transmission Date: 20250408
  Serious: Yes (Hospitalization)
  Sender: MYLAN
  Company Number: PK-MYLANLABS-2025M1005261

PATIENT
  Age: 17 Year
  Sex: Male
  Weight: 61 kg

DRUGS (3)
  1. PRETOMANID [Suspect]
     Active Substance: PRETOMANID
     Indication: Tuberculosis
     Dosage: 200 MILLIGRAM, QD (ONCE DAILY)
     Route: 048
     Dates: start: 20240610, end: 20241222
  2. BEDAQUILINE [Suspect]
     Active Substance: BEDAQUILINE
     Indication: Tuberculosis
     Dosage: 200 MILLIGRAM, 3XW (3 TIMES PER WEEK)
     Route: 048
     Dates: start: 20240610, end: 20241222
  3. LINEZOLID [Suspect]
     Active Substance: LINEZOLID
     Indication: Tuberculosis
     Dosage: 600 MILLIGRAM, QD (ONCE DAILY)
     Route: 048
     Dates: start: 20240610, end: 20241222

REACTIONS (2)
  - Oedema [Unknown]
  - Proteinuria [Unknown]

NARRATIVE: CASE EVENT DATE: 20241223
